FAERS Safety Report 11350029 (Version 1)
Quarter: 2015Q3

REPORT INFORMATION
  Report Type: Spontaneous
  Country: CH (occurrence: CH)
  Receive Date: 20150807
  Receipt Date: 20150807
  Transmission Date: 20151125
  Serious: Yes (Hospitalization)
  Sender: FDA-Public Use
  Company Number: CH-JNJFOC-20150800847

PATIENT
  Age: 85 Year
  Sex: Male
  Weight: 86 kg

DRUGS (6)
  1. PLAVIX [Suspect]
     Active Substance: CLOPIDOGREL BISULFATE
     Indication: ATRIAL FIBRILLATION
     Route: 048
     Dates: end: 20150606
  2. TOLTERODINE [Concomitant]
     Active Substance: TOLTERODINE
     Indication: HYPERTONIC BLADDER
     Route: 048
  3. BELOC (METOPROLOL TARTRATE) [Concomitant]
     Indication: ARRHYTHMIA
     Route: 048
  4. XARELTO [Suspect]
     Active Substance: RIVAROXABAN
     Indication: ATRIAL FIBRILLATION
     Route: 048
     Dates: start: 201503, end: 20150607
  5. PRAVASTATIN [Concomitant]
     Active Substance: PRAVASTATIN\PRAVASTATIN SODIUM
     Indication: DYSLIPIDAEMIA
     Route: 048
  6. COVERSUM COMBI [Suspect]
     Active Substance: INDAPAMIDE
     Indication: HYPERTENSION
     Route: 048
     Dates: end: 20150607

REACTIONS (5)
  - Abdominal pain upper [Recovered/Resolved]
  - Acute kidney injury [Recovering/Resolving]
  - Melaena [Recovered/Resolved]
  - Syncope [Recovered/Resolved]
  - Normochromic normocytic anaemia [Recovering/Resolving]

NARRATIVE: CASE EVENT DATE: 20150601
